FAERS Safety Report 20826013 (Version 1)
Quarter: 2022Q2

REPORT INFORMATION
  Report Type: Spontaneous
  Country: US (occurrence: None)
  Receive Date: 20220512
  Receipt Date: 20220512
  Transmission Date: 20220721
  Serious: Yes (Death)
  Sender: FDA-Public Use
  Company Number: None

PATIENT
  Sex: Male

DRUGS (2)
  1. TACROLIMUS [Suspect]
     Active Substance: TACROLIMUS
     Indication: Complications of transplanted lung
     Route: 048
     Dates: start: 202202
  2. TACROLIMUS [Suspect]
     Active Substance: TACROLIMUS
     Indication: Anaemia

REACTIONS (1)
  - Cystic fibrosis [None]
